FAERS Safety Report 9801249 (Version 6)
Quarter: 2020Q3

REPORT INFORMATION
  Report Type: Report from Study
  Country: TR (occurrence: TR)
  Receive Date: 20140107
  Receipt Date: 20140429
  Transmission Date: 20201105
  Serious: Yes (Death, Hospitalization)
  Sender: FDA-Public Use
  Company Number: TR-JNJFOC-20130600320

PATIENT
  Age: 53 Year
  Sex: Female
  Weight: 70 kg

DRUGS (6)
  1. IBRUTINIB [Suspect]
     Active Substance: IBRUTINIB
     Route: 048
  2. OROHEKS [Concomitant]
     Indication: PROPHYLAXIS
     Route: 048
     Dates: start: 20130520
  3. MIKOSTATIN [Concomitant]
     Active Substance: NYSTATIN
     Indication: ANTIFUNGAL TREATMENT
     Route: 048
     Dates: start: 20130520, end: 201307
  4. ZALAIN [Concomitant]
     Indication: ASTHMA
  5. DEXAMETHASONE. [Concomitant]
     Active Substance: DEXAMETHASONE
     Indication: HYPERSENSITIVITY
     Route: 048
     Dates: start: 20130424, end: 20130506
  6. IBRUTINIB [Suspect]
     Active Substance: IBRUTINIB
     Indication: CHRONIC LYMPHOCYTIC LEUKAEMIA
     Route: 048
     Dates: start: 20130410, end: 20130716

REACTIONS (6)
  - Febrile neutropenia [Recovered/Resolved]
  - Herpes simplex [Recovered/Resolved]
  - Arthritis [Recovered/Resolved]
  - Myalgia [Recovering/Resolving]
  - Pneumonia [Recovered/Resolved]
  - Oropharyngeal candidiasis [Recovered/Resolved]

NARRATIVE: CASE EVENT DATE: 20130520
